FAERS Safety Report 5789462-5 (Version None)
Quarter: 2008Q2

REPORT INFORMATION
  Report Type: 
  Country: None (occurrence: None)
  Receive Date: 20080618
  Receipt Date: 20080218
  Transmission Date: 20081010
  Serious: Yes (Other)
  Sender: FDA-Public Use
  Company Number: 200811098US

PATIENT
  Age: 60 Year
  Sex: Female

DRUGS (7)
  1. LANTUS [Suspect]
     Indication: TYPE 2 DIABETES MELLITUS
     Dosage: 18 U QD INJ
     Dates: start: 20080110
  2. OPTICLIK [Suspect]
     Indication: TYPE 2 DIABETES MELLITUS
     Dates: start: 20080201
  3. SIMVASTATIN [Concomitant]
  4. LISINOPRIL [Concomitant]
  5. ACTOPLUS MET [Concomitant]
  6. ACETYSALICYLIC ACID (ASA) [Concomitant]
  7. VITAMIN TAB [Concomitant]

REACTIONS (3)
  - HYPOGLYCAEMIA [None]
  - TACHYCARDIA [None]
  - VISION BLURRED [None]
